FAERS Safety Report 25403350 (Version 1)
Quarter: 2025Q2

REPORT INFORMATION
  Report Type: Spontaneous
  Country: US (occurrence: US)
  Receive Date: 20250605
  Receipt Date: 20250605
  Transmission Date: 20250716
  Serious: No
  Sender: MERZ
  Company Number: US-Merz Pharmaceuticals GmbH-2025050000225

PATIENT

DRUGS (1)
  1. XEOMIN [Suspect]
     Active Substance: INCOBOTULINUMTOXINA
     Indication: Product used for unknown indication
     Dates: start: 20250528, end: 20250528

REACTIONS (2)
  - Injection site pain [Unknown]
  - Product preparation issue [Unknown]

NARRATIVE: CASE EVENT DATE: 20250528
